FAERS Safety Report 5289321-0 (Version None)
Quarter: 2007Q2

REPORT INFORMATION
  Report Type: 
  Country: None (occurrence: None)
  Receive Date: 20070404
  Receipt Date: 20070404
  Transmission Date: 20071010
  Serious: Yes (Death)
  Sender: FDA-Public Use
  Company Number: None

PATIENT
  Age: 60 Year
  Sex: Male
  Weight: 81.1939 kg

DRUGS (13)
  1. GEMCITABINE [Suspect]
     Indication: NON-SMALL CELL LUNG CANCER STAGE IV
     Dosage: 1970 MG DAYS 3 + 10 Q 21 D IV DRIP
     Route: 041
     Dates: start: 20070313, end: 20070321
  2. IMATINIB MESYLATE [Suspect]
     Indication: NON-SMALL CELL LUNG CANCER STAGE IV
     Dosage: 400 MG D 1-5, 8-12 Q 21 D PO
     Route: 048
     Dates: start: 20070315, end: 20070315
  3. ZOLEDRONIC ACID [Concomitant]
  4. ONDANSETRON [Concomitant]
  5. OXYCONTIN [Concomitant]
  6. PREDNISONE TAB [Concomitant]
  7. NEURONTIN [Concomitant]
  8. AMITRIPTYLINE HCL [Concomitant]
  9. LORAZEPAM [Concomitant]
  10. AMBIEN [Concomitant]
  11. LEVOXYL [Concomitant]
  12. OXYCODONE HCL [Concomitant]
  13. LOVENOX [Concomitant]

REACTIONS (4)
  - ADENOCARCINOMA [None]
  - DISEASE PROGRESSION [None]
  - PLEURAL EFFUSION [None]
  - RESUSCITATION [None]
